FAERS Safety Report 24953319 (Version 1)
Quarter: 2025Q1

REPORT INFORMATION
  Report Type: Spontaneous
  Country: US (occurrence: US)
  Receive Date: 20250211
  Receipt Date: 20250211
  Transmission Date: 20250408
  Serious: No
  Sender: SANOFI AVENTIS
  Company Number: US-SA-2025SA034138

PATIENT
  Sex: Female
  Weight: 73.48 kg

DRUGS (29)
  1. DUPIXENT [Suspect]
     Active Substance: DUPILUMAB
     Indication: Dermatitis atopic
     Dosage: 300 MG, QOW
     Route: 058
  2. ADVIL [Concomitant]
     Active Substance: IBUPROFEN
  3. ALLEGRA HIVES 24HR [Concomitant]
     Active Substance: FEXOFENADINE HYDROCHLORIDE
  4. CEQUA [Concomitant]
     Active Substance: CYCLOSPORINE
  5. CLEARLAX [Concomitant]
     Active Substance: POLYETHYLENE GLYCOL 3350
  6. DEMANNOSE [Concomitant]
     Active Substance: DEMANNOSE
  7. DEPLIN [Concomitant]
     Active Substance: LEVOMEFOLATE CALCIUM
  8. PRASTERONE [Concomitant]
     Active Substance: PRASTERONE
  9. ESTRADIOL [Concomitant]
     Active Substance: ESTRADIOL
  10. FEMRING [Concomitant]
     Active Substance: ESTRADIOL ACETATE
  11. FISH OIL [Concomitant]
     Active Substance: FISH OIL
  12. FLONASE ALLERGY RELIEF [Concomitant]
     Active Substance: FLUTICASONE PROPIONATE
  13. GABAPENTIN [Concomitant]
     Active Substance: GABAPENTIN
  14. LAMICTAL ODT [Concomitant]
     Active Substance: LAMOTRIGINE
  15. LORATADINE [Concomitant]
     Active Substance: LORATADINE
  16. MAGNESIUM CITRATE [Concomitant]
     Active Substance: MAGNESIUM CITRATE
  17. METHIONINE [Concomitant]
     Active Substance: METHIONINE
  18. MOTEGRITY [Concomitant]
     Active Substance: PRUCALOPRIDE SUCCINATE
  19. VITAMINS [Concomitant]
     Active Substance: VITAMINS
  20. MYRBETRIQ [Concomitant]
     Active Substance: MIRABEGRON
  21. PATANASE [Concomitant]
     Active Substance: OLOPATADINE HYDROCHLORIDE
  22. PROMETRIUM [Concomitant]
     Active Substance: PROGESTERONE
  23. SPRINTEC [Concomitant]
     Active Substance: ETHINYL ESTRADIOL\NORGESTIMATE
  24. SYNTHROID [Concomitant]
     Active Substance: LEVOTHYROXINE SODIUM
  25. TESTOSTERONE PROPIONATE [Concomitant]
     Active Substance: TESTOSTERONE PROPIONATE
  26. TRINTELLIX [Concomitant]
     Active Substance: VORTIOXETINE HYDROBROMIDE
  27. VITAMIN D3 [Concomitant]
     Active Substance: CHOLECALCIFEROL
  28. WELLBUTRIN [Concomitant]
     Active Substance: BUPROPION HYDROCHLORIDE
  29. ZINC [Concomitant]
     Active Substance: ZINC

REACTIONS (3)
  - Influenza [Unknown]
  - Surgery [Unknown]
  - Off label use [Unknown]
